FAERS Safety Report 19400437 (Version 4)
Quarter: 2022Q1

REPORT INFORMATION
  Report Type: Report from Study
  Country: US (occurrence: US)
  Receive Date: 20210610
  Receipt Date: 20220214
  Transmission Date: 20220424
  Serious: No
  Sender: FDA-Public Use
  Company Number: NVSC2021US125337

PATIENT
  Sex: Female

DRUGS (2)
  1. ENTRESTO [Suspect]
     Active Substance: SACUBITRIL\VALSARTAN
     Indication: Product used for unknown indication
     Dosage: UNK UNK, BID
     Route: 048
  2. LISINOPRIL [Suspect]
     Active Substance: LISINOPRIL
     Indication: Product used for unknown indication
     Dosage: UNK
     Route: 065

REACTIONS (11)
  - Dyspnoea [Unknown]
  - Rhinorrhoea [Unknown]
  - Balance disorder [Unknown]
  - Weight decreased [Unknown]
  - Visual impairment [Unknown]
  - Blood pressure systolic increased [Unknown]
  - Fall [Unknown]
  - Cough [Unknown]
  - Diarrhoea [Unknown]
  - Eating disorder [Unknown]
  - Back pain [Unknown]
